FAERS Safety Report 9889451 (Version 4)
Quarter: 2014Q2

REPORT INFORMATION
  Report Type: Report from Study
  Country: DE (occurrence: DE)
  Receive Date: 20140211
  Receipt Date: 20140404
  Transmission Date: 20141212
  Serious: Yes (Hospitalization, Other)
  Sender: FDA-Public Use
  Company Number: DE-ABBVIE-13P-062-1181437-00

PATIENT
  Age: 66 Year
  Sex: Male
  Weight: 79.5 kg

DRUGS (4)
  1. HUMIRA [Suspect]
     Indication: PSORIATIC ARTHROPATHY
     Route: 058
     Dates: start: 20120213, end: 20131215
  2. METHOTREXATE [Suspect]
     Indication: PSORIASIS
     Dosage: 50 MG/7,5 MG
     Route: 058
     Dates: start: 20121121, end: 20131024
  3. ATACAND [Concomitant]
     Indication: BLOOD PRESSURE INCREASED
     Dosage: 16/12,5 MG
     Route: 048
     Dates: start: 2003
  4. AMLODIPIN [Concomitant]
     Indication: PRODUCT USED FOR UNKNOWN INDICATION
     Route: 048

REACTIONS (6)
  - Hepatic lesion [Recovered/Resolved with Sequelae]
  - Renal cancer [Not Recovered/Not Resolved]
  - Alanine aminotransferase increased [Not Recovered/Not Resolved]
  - Aspartate aminotransferase increased [Not Recovered/Not Resolved]
  - Antinuclear antibody increased [Not Recovered/Not Resolved]
  - Hepatic fibrosis marker abnormal [Not Recovered/Not Resolved]
